FAERS Safety Report 14204878 (Version 1)
Quarter: 2017Q4

REPORT INFORMATION
  Report Type: Spontaneous
  Country: US (occurrence: US)
  Receive Date: 20171118
  Receipt Date: 20171118
  Transmission Date: 20180321
  Serious: Yes (Other)
  Sender: FDA-Public Use
  Company Number: None

PATIENT
  Age: 83 Year
  Sex: Female
  Weight: 65.25 kg

DRUGS (14)
  1. CRESTOR [Concomitant]
     Active Substance: ROSUVASTATIN CALCIUM
  2. BABY ASPIRIN [Concomitant]
     Active Substance: ASPIRIN
  3. VITAMIN C [Concomitant]
     Active Substance: ASCORBIC ACID
  4. PROBIOTIC [Concomitant]
     Active Substance: PROBIOTICS NOS
  5. LEVOTHYROXIN [Concomitant]
     Active Substance: LEVOTHYROXINE
  6. VITAMIN D [Concomitant]
     Active Substance: CHOLECALCIFEROL
  7. MULTI VITAMIN [Concomitant]
     Active Substance: VITAMINS
  8. ISOSORBIDE. [Concomitant]
     Active Substance: ISOSORBIDE
  9. CO-Q10 [Concomitant]
  10. LEVOFLOXACIN 250MG TABLETS [Suspect]
     Active Substance: LEVOFLOXACIN
     Indication: URINARY TRACT INFECTION
     Dosage: ?          QUANTITY:1 TABLET(S);?
     Route: 048
     Dates: start: 20171115, end: 20171118
  11. METOPROLOL XL [Concomitant]
     Active Substance: METOPROLOL SUCCINATE
  12. FLAXSEED [Concomitant]
     Active Substance: FLAX SEED
  13. HYDROCHLOR [Concomitant]
  14. BIOTIN [Concomitant]
     Active Substance: BIOTIN

REACTIONS (6)
  - No reaction on previous exposure to drug [None]
  - Abdominal discomfort [None]
  - Fatigue [None]
  - Burning sensation [None]
  - Insomnia [None]
  - Tongue discomfort [None]

NARRATIVE: CASE EVENT DATE: 20171115
